FAERS Safety Report 6034576-8 (Version None)
Quarter: 2009Q1

REPORT INFORMATION
  Report Type: 
  Country: None (occurrence: None)
  Receive Date: 20090112
  Receipt Date: 20081231
  Transmission Date: 20090719
  Serious: Yes (Hospitalization)
  Sender: FDA-Public Use
  Company Number: GB-PFIZER INC-2009150592

PATIENT

DRUGS (10)
  1. CHAMPIX [Suspect]
     Indication: SMOKING CESSATION THERAPY
     Dosage: 1 MG, 2X/DAY
     Route: 048
     Dates: start: 20081120
  2. ACETYLSALICYLIC ACID [Concomitant]
     Dosage: 75 MG, 1X/DAY
     Route: 048
  3. ATORVASTATIN CALCIUM [Concomitant]
     Dosage: 80 MG, 1X/DAY
     Route: 048
  4. CLOPIDOGREL [Concomitant]
     Dosage: 75 MG, 1X/DAY
     Route: 048
  5. LORATADINE [Concomitant]
     Dosage: 10 MG, 1X/DAY
  6. METOCLOPRAMIDE HYDROCHLORIDE [Concomitant]
     Dosage: 10 MG, 3X/DAY
  7. NITRAZEPAM [Concomitant]
     Dosage: 5 MG, 1X/DAY
     Route: 048
  8. SYMBICORT [Concomitant]
  9. TRAMADOL HYDROCHLORIDE [Concomitant]
     Dosage: 100 MG, 4X/DAY
     Route: 048
  10. TRIMETHOPRIM [Concomitant]
     Dosage: 100 MG, 1X/DAY

REACTIONS (3)
  - DYSARTHRIA [None]
  - HEADACHE [None]
  - MUSCULAR WEAKNESS [None]
